FAERS Safety Report 19068784 (Version 1)
Quarter: 2021Q1

REPORT INFORMATION
  Report Type: Spontaneous
  Country: US (occurrence: US)
  Receive Date: 20210328
  Receipt Date: 20210328
  Transmission Date: 20210420
  Serious: No
  Sender: FDA-Public Use
  Company Number: None

PATIENT
  Sex: Male

DRUGS (1)
  1. HUMIRA [Suspect]
     Active Substance: ADALIMUMAB
     Indication: PSORIATIC ARTHROPATHY
     Dosage: OTHER DOSE:40MG/0.4ML;OTHER ROUTE:UNDER THE SKIN?
     Route: 058
     Dates: start: 20190201

REACTIONS (2)
  - Erythema [None]
  - Pruritus [None]
